FAERS Safety Report 8901216 (Version 1)
Quarter: 2012Q4

REPORT INFORMATION
  Report Type: Report from Study
  Country: JP (occurrence: JP)
  Receive Date: 20121109
  Receipt Date: 20121109
  Transmission Date: 20130627
  Serious: Yes (Other)
  Sender: FDA-Public Use
  Company Number: JP-VERTEX PHARMACEUTICAL INC.-2012-020274

PATIENT
  Age: 48 Year
  Sex: Female

DRUGS (7)
  1. PEGINTRON                          /01543001/ [Suspect]
     Dosage: 0.75 UNK, qw
     Route: 058
     Dates: start: 20120711, end: 20120711
  2. PEGINTRON                          /01543001/ [Suspect]
     Dosage: 1.5 UNK, qw
     Route: 058
     Dates: start: 20120718
  3. RIBAVIRIN [Concomitant]
     Dosage: 600 mg, qd
     Route: 048
     Dates: start: 20120509
  4. LOXONIN [Concomitant]
     Dosage: 1 DF, prn
     Route: 048
     Dates: start: 20120509
  5. RINDERON-VG [Concomitant]
     Dosage: UNK, prn
     Route: 061
     Dates: start: 20120516
  6. VX-950 (TELAPREVIR) [Suspect]
     Indication: CHRONIC HEPATITIS C
     Dosage: 1500 mg, qd
     Route: 048
     Dates: start: 20120509, end: 20120731
  7. PEGINTRON                          /01543001/ [Suspect]
     Indication: CHRONIC HEPATITIS C
     Dosage: 1.5 UNK, qw
     Route: 058
     Dates: start: 20120509, end: 20120704

REACTIONS (6)
  - Neutrophil count decreased [Recovered/Resolved]
  - Rash [None]
  - Pruritus [None]
  - Erythema [None]
  - Stomatitis [None]
  - Oral mucosa erosion [None]
